FAERS Safety Report 7104617-5 (Version None)
Quarter: 2010Q4

REPORT INFORMATION
  Report Type: 
  Country: None (occurrence: None)
  Receive Date: 20101109
  Receipt Date: 20101030
  Transmission Date: 20110411
  Serious: Yes (Hospitalization)
  Sender: FDA-Public Use
  Company Number: 744207

PATIENT
  Age: 69 Year
  Sex: Male

DRUGS (4)
  1. PENTOSTATIN [Suspect]
     Indication: HAIRY CELL LEUKAEMIA
     Dosage: 16 MG MILLIGRAM(S), MONTH, INTRAVENOUS
     Route: 042
     Dates: start: 20100715, end: 20100913
  2. (ACICLOVIR) [Concomitant]
  3. COUMADIN [Concomitant]
  4. BACTRIM [Concomitant]

REACTIONS (2)
  - ACUTE GENERALISED EXANTHEMATOUS PUSTULOSIS [None]
  - RHABDOMYOLYSIS [None]
